FAERS Safety Report 10240958 (Version 2)
Quarter: 2014Q2

REPORT INFORMATION
  Report Type: Spontaneous
  Country: JP (occurrence: JP)
  Receive Date: 20140617
  Receipt Date: 20140630
  Transmission Date: 20141212
  Serious: Yes (Other)
  Sender: FDA-Public Use
  Company Number: JP-JNJFOC-20140605867

PATIENT
  Age: 64 Year
  Sex: Male

DRUGS (3)
  1. ITRIZOLE [Suspect]
     Indication: ASPERGILLUS INFECTION
     Route: 048
     Dates: start: 201007
  2. ITRIZOLE [Suspect]
     Indication: ASPERGILLUS INFECTION
     Route: 048
     Dates: start: 200702, end: 201002
  3. RIFAMPICIN [Concomitant]
     Route: 048
     Dates: start: 201002

REACTIONS (1)
  - Mycobacterial infection [Not Recovered/Not Resolved]
